FAERS Safety Report 4509666-9 (Version None)
Quarter: 2004Q4

REPORT INFORMATION
  Report Type: 
  Country: None (occurrence: None)
  Receive Date: 20041124
  Receipt Date: 20041026
  Transmission Date: 20050328
  Serious: Yes (Other)
  Sender: FDA-Public Use
  Company Number: 200413207EU

PATIENT
  Age: 79 Year
  Sex: Female

DRUGS (3)
  1. CLAFORAN [Suspect]
     Indication: PNEUMONIA
     Dates: end: 20040216
  2. FUROSEMIDE [Suspect]
  3. PENTREXYL [Suspect]
     Indication: PNEUMONIA
     Dates: end: 20040216

REACTIONS (2)
  - ERYTHEMA MULTIFORME [None]
  - TOXIC EPIDERMAL NECROLYSIS [None]
